FAERS Safety Report 24381488 (Version 2)
Quarter: 2024Q4

REPORT INFORMATION
  Report Type: Spontaneous
  Country: PT (occurrence: PT)
  Receive Date: 20241001
  Receipt Date: 20241105
  Transmission Date: 20250115
  Serious: Yes (Other)
  Sender: BRISTOL-MYERS SQUIBB COMPANY
  Company Number: None

PATIENT
  Age: 68 Year
  Sex: Male
  Weight: 78.8 kg

DRUGS (3)
  1. ENTECAVIR [Suspect]
     Active Substance: ENTECAVIR
     Indication: Hepatitis B
     Dosage: 0.5 MG, 1XDAY
     Route: 048
     Dates: start: 20240228, end: 20240708
  2. ENTECAVIR [Suspect]
     Active Substance: ENTECAVIR
     Route: 048
     Dates: start: 20240228, end: 20240708
  3. CANDESARTAN CILEXETIL\HYDROCHLOROTHIAZIDE [Concomitant]
     Active Substance: CANDESARTAN CILEXETIL\HYDROCHLOROTHIAZIDE
     Indication: Chemotherapy
     Dosage: STRENGTH: 16 MG+12.5 MG
     Route: 048
     Dates: start: 20231207, end: 20240301

REACTIONS (3)
  - Paraesthesia [Not Recovered/Not Resolved]
  - Supraventricular tachycardia [Recovering/Resolving]
  - Blood pressure increased [Recovered/Resolved]

NARRATIVE: CASE EVENT DATE: 20240228
